FAERS Safety Report 15081840 (Version 6)
Quarter: 2018Q3

REPORT INFORMATION
  Report Type: Spontaneous
  Country: US (occurrence: US)
  Receive Date: 20180628
  Receipt Date: 20180810
  Transmission Date: 20181010
  Serious: Yes (Hospitalization, Other)
  Sender: FDA-Public Use
  Company Number: US-PFIZER INC-2018260075

PATIENT
  Age: 58 Year
  Sex: Male

DRUGS (6)
  1. THYROGEN [Concomitant]
     Active Substance: THYROTROPIN ALFA
     Dosage: UNK
  2. NICOTROL [Suspect]
     Active Substance: NICOTINE
     Dosage: UNK
     Route: 055
     Dates: start: 2018, end: 2018
  3. NICOTINE. [Concomitant]
     Active Substance: NICOTINE
     Indication: SMOKING CESSATION THERAPY
     Dosage: UNK
  4. NICOTROL [Suspect]
     Active Substance: NICOTINE
     Indication: SMOKING CESSATION THERAPY
     Dosage: 10 MG CARTRIDGE DELIVERS 4 MG, 1?2 PUFFS AS NEEDED
     Route: 055
     Dates: start: 201804, end: 20180702
  5. CALCIUM HIGH CAL + VITAMIN D [Concomitant]
     Dosage: 500 MG, 3X/DAY
  6. ATORVASTATIN [Concomitant]
     Active Substance: ATORVASTATIN
     Indication: BLOOD CHOLESTEROL
     Dosage: 20 MG, 1X/DAY

REACTIONS (12)
  - Weight increased [Unknown]
  - Product quality issue [Unknown]
  - Suicidal ideation [Unknown]
  - Muscle disorder [Unknown]
  - Thyroid mass [Unknown]
  - Condition aggravated [Unknown]
  - Aphonia [Unknown]
  - Muscle spasms [Unknown]
  - Malaise [Unknown]
  - Myalgia [Unknown]
  - Product physical issue [Unknown]
  - Drug ineffective [Unknown]

NARRATIVE: CASE EVENT DATE: 2018
